FAERS Safety Report 5036418-6 (Version None)
Quarter: 2006Q2

REPORT INFORMATION
  Report Type: 
  Country: None (occurrence: None)
  Receive Date: 20060601
  Receipt Date: 20060411
  Transmission Date: 20061013
  Serious: No
  Sender: FDA-Public Use
  Company Number: US200604001992

PATIENT
  Age: 51 Year
  Sex: Male

DRUGS (4)
  1. CYMBALTA [Suspect]
     Indication: DEPRESSION
     Dosage: SEE IMAGE
     Dates: start: 20060401
  2. METOPROLOL (METOPROLOL) [Concomitant]
  3. VICODIN [Concomitant]
  4. ANTACID TAB [Concomitant]

REACTIONS (6)
  - EJACULATION FAILURE [None]
  - ERECTILE DYSFUNCTION [None]
  - HYPOAESTHESIA [None]
  - LIBIDO DECREASED [None]
  - PENIS DISORDER [None]
  - VOMITING [None]
